FAERS Safety Report 6291910-1 (Version None)
Quarter: 2009Q3

REPORT INFORMATION
  Report Type: 
  Country: None (occurrence: None)
  Receive Date: 20090723
  Receipt Date: 20090717
  Transmission Date: 20100115
  Serious: Yes (Other)
  Sender: FDA-Public Use
  Company Number: 2009020488

PATIENT
  Sex: Male

DRUGS (1)
  1. VIVAGLOBIN [Suspect]
     Dosage: (7.36 G, 7.36 G EVERY 7 DAYS SUBCUTANEOUS)
     Route: 058
     Dates: start: 20061001

REACTIONS (1)
  - HEPATITIS B [None]
